FAERS Safety Report 20783355 (Version 1)
Quarter: 2022Q2

REPORT INFORMATION
  Report Type: Spontaneous
  Country: CA (occurrence: CA)
  Receive Date: 20220504
  Receipt Date: 20220504
  Transmission Date: 20220721
  Serious: Yes (Other)
  Sender: FDA-Public Use
  Company Number: CA-TEVA-2022-CA-2031817

PATIENT
  Sex: Male

DRUGS (8)
  1. FENTANYL [Suspect]
     Active Substance: FENTANYL
     Indication: Back pain
     Route: 065
  2. HYDROMORPHONE HYDROCHLORIDE [Suspect]
     Active Substance: HYDROMORPHONE HYDROCHLORIDE
     Indication: Back pain
     Route: 048
  3. HYDROMORPHONE HYDROCHLORIDE [Suspect]
     Active Substance: HYDROMORPHONE HYDROCHLORIDE
     Route: 048
  4. MORPHINE SULFATE [Suspect]
     Active Substance: MORPHINE SULFATE
     Indication: Back pain
     Route: 065
  5. BUTRANS [Suspect]
     Active Substance: BUPRENORPHINE
     Indication: Back pain
     Route: 062
  6. OXYCODONE HYDROCHLORIDE [Suspect]
     Active Substance: OXYCODONE HYDROCHLORIDE
     Indication: Back pain
     Route: 048
  7. OXYCONTIN [Suspect]
     Active Substance: OXYCODONE HYDROCHLORIDE
     Indication: Back pain
     Route: 048
  8. OXYCODONE [Suspect]
     Active Substance: OXYCODONE
     Indication: Back pain
     Route: 048

REACTIONS (4)
  - Suicidal ideation [Unknown]
  - Depression [Unknown]
  - Drug dependence [Unknown]
  - Drug abuse [Unknown]
